FAERS Safety Report 7992559-2 (Version None)
Quarter: 2011Q4

REPORT INFORMATION
  Report Type: 
  Country: None (occurrence: None)
  Receive Date: 20111219
  Receipt Date: 20111216
  Transmission Date: 20120403
  Serious: Yes (Death, Other)
  Sender: FDA-Public Use
  Company Number: PHHY2011AU098164

PATIENT
  Sex: Female

DRUGS (3)
  1. ZOLEDRONOC ACID [Suspect]
     Dosage: 5 MG
     Route: 042
     Dates: start: 20090326
  2. OPIOIDS [Concomitant]
     Route: 058
  3. ZOLEDRONOC ACID [Suspect]
     Dosage: 5 MG
     Route: 042
     Dates: start: 20100401

REACTIONS (5)
  - LOSS OF CONSCIOUSNESS [None]
  - PANCREATIC CARCINOMA [None]
  - CIRCULATORY COLLAPSE [None]
  - METASTASES TO LUNG [None]
  - MALIGNANT MESENTERIC NEOPLASM [None]
